FAERS Safety Report 9972217 (Version 1)
Quarter: 2014Q1

REPORT INFORMATION
  Report Type: Spontaneous
  Country: US (occurrence: None)
  Receive Date: 20140127
  Receipt Date: 20140127
  Transmission Date: 20141002
  Serious: Yes (Other)
  Sender: FDA-Public Use
  Company Number: 1272007

PATIENT
  Age: 20 Year
  Sex: Female

DRUGS (1)
  1. RITUXIMAB [Suspect]
     Indication: CASTLEMAN^S DISEASE
     Route: 042

REACTIONS (2)
  - Infusion related reaction [None]
  - Cardiac failure acute [None]
